FAERS Safety Report 9042391 (Version 1)
Quarter: 2013Q1

REPORT INFORMATION
  Report Type: Spontaneous
  Country: US (occurrence: US)
  Receive Date: 20130129
  Receipt Date: 20130129
  Transmission Date: 20140127
  Serious: No
  Sender: FDA-Public Use
  Company Number: US-PFIZER INC-2013033963

PATIENT
  Age: 46 Year
  Sex: Female
  Weight: 87.08 kg

DRUGS (1)
  1. INDERAL LA [Suspect]
     Indication: MIGRAINE
     Dosage: 60 MG, 2X/DAY
     Route: 048

REACTIONS (1)
  - Drug ineffective [Unknown]
